FAERS Safety Report 7559085-6 (Version None)
Quarter: 2011Q2

REPORT INFORMATION
  Report Type: 
  Country: None (occurrence: None)
  Receive Date: 20110613
  Receipt Date: 20110602
  Transmission Date: 20111010
  Serious: Yes (Life-Threatening, Hospitalization)
  Sender: FDA-Public Use
  Company Number: WAES 1105USA02114

PATIENT
  Age: 23 Month
  Sex: Male
  Weight: 10.8863 kg

DRUGS (19)
  1. GRANULOCYTE COLONY STIMULATING [Concomitant]
  2. LOVENOX [Suspect]
  3. ETOPOSIDE [Suspect]
     Indication: MEDULLOBLASTOMA
     Dosage: 2.5 MG/KG/DAILY/IV
     Route: 042
     Dates: start: 20100312, end: 20110314
  4. ETOPOSIDE [Suspect]
     Indication: MEDULLOBLASTOMA
     Dosage: 2.5 MG/KG/DAILY/IV
     Route: 042
     Dates: start: 20110404, end: 20110406
  5. ETOPOSIDE [Suspect]
     Indication: MEDULLOBLASTOMA
     Dosage: 2.5 MG/KG/DAILY/IV
     Route: 042
     Dates: start: 20110430, end: 20110502
  6. CISPLATIN [Suspect]
     Indication: MEDULLOBLASTOMA
     Dosage: 3.5 MG/KG/1X/IV
     Route: 042
     Dates: start: 20110312, end: 20110312
  7. CISPLATIN [Suspect]
     Indication: MEDULLOBLASTOMA
     Dosage: 3.5 MG/KG/1X/IV
     Route: 042
     Dates: start: 20110430, end: 20110430
  8. CISPLATIN [Suspect]
     Indication: MEDULLOBLASTOMA
     Dosage: 3.5 MG/KG/1X/IV
     Route: 042
     Dates: start: 20110404, end: 20110404
  9. VINCRISTINE SULFATE [Concomitant]
  10. CAP VORINOSTAT UNK [Suspect]
     Indication: MEDULLOBLASTOMA
     Dosage: 230 MG/M[2]/DAILY/PO
     Route: 048
     Dates: start: 20110401, end: 20110404
  11. CAP VORINOSTAT UNK [Suspect]
     Indication: MEDULLOBLASTOMA
     Dosage: 230 MG/M[2]/DAILY/PO
     Route: 048
     Dates: start: 20110309, end: 20110312
  12. CAP VORINOSTAT UNK [Suspect]
     Indication: MEDULLOBLASTOMA
     Dosage: 230 MG/M[2]/DAILY/PO
     Route: 048
     Dates: start: 20110427, end: 20110430
  13. DECADRON [Suspect]
     Dosage: PO
     Route: 048
  14. CYCLOPHOSPHAMIDE [Suspect]
     Indication: MEDULLOBLASTOMA
     Dosage: 60 MG/KG/DAILY/IV
     Route: 042
     Dates: start: 20110501, end: 20110506
  15. CYCLOPHOSPHAMIDE [Suspect]
     Indication: MEDULLOBLASTOMA
     Dosage: 60 MG/KG/DAILY/IV
     Route: 042
     Dates: start: 20110405, end: 20110406
  16. CYCLOPHOSPHAMIDE [Suspect]
     Indication: MEDULLOBLASTOMA
     Dosage: 60 MG/KG/DAILY/IV
     Route: 042
     Dates: start: 20110313, end: 20110314
  17. ZANTAC [Concomitant]
  18. ISOTRETINOIN [Concomitant]
  19. PEGFILGRASTIM [Concomitant]

REACTIONS (22)
  - BLOOD POTASSIUM DECREASED [None]
  - SOMNOLENCE [None]
  - PANCYTOPENIA [None]
  - PNEUMONIA [None]
  - BACTERIAL INFECTION [None]
  - INTRAVENTRICULAR HAEMORRHAGE [None]
  - HYPOTENSION [None]
  - MUCOSAL INFLAMMATION [None]
  - DEVICE RELATED INFECTION [None]
  - DIARRHOEA [None]
  - BRADYCARDIA [None]
  - DEHYDRATION [None]
  - VOMITING [None]
  - TACHYCARDIA [None]
  - SHUNT MALFUNCTION [None]
  - SUBCLAVIAN VEIN THROMBOSIS [None]
  - CONVULSION [None]
  - HYDROCEPHALUS [None]
  - WHITE BLOOD CELL COUNT DECREASED [None]
  - ELECTROLYTE IMBALANCE [None]
  - FEBRILE NEUTROPENIA [None]
  - LUNG INFECTION [None]
